FAERS Safety Report 13913097 (Version 1)
Quarter: 2017Q3

REPORT INFORMATION
  Report Type: Spontaneous
  Country: US (occurrence: US)
  Receive Date: 20170828
  Receipt Date: 20170828
  Transmission Date: 20171127
  Serious: No
  Sender: FDA-Public Use
  Company Number: US-ROCHE-1124168

PATIENT
  Age: 15 Year
  Sex: Male
  Weight: 57 kg

DRUGS (2)
  1. NUTROPIN [Suspect]
     Active Substance: SOMATROPIN
     Indication: GROWTH HORMONE DEFICIENCY
     Dosage: RECONSTITUTED
     Route: 058
  2. NUTROPIN [Suspect]
     Active Substance: SOMATROPIN
     Route: 058

REACTIONS (3)
  - Back pain [Unknown]
  - Scoliosis [Unknown]
  - Blood bilirubin increased [Unknown]

NARRATIVE: CASE EVENT DATE: 19991026
